FAERS Safety Report 10495294 (Version 1)
Quarter: 2014Q3

REPORT INFORMATION
  Report Type: Spontaneous
  Country: US (occurrence: None)
  Receive Date: 20140815
  Receipt Date: 20140815
  Transmission Date: 20150326
  Serious: Yes (Life-Threatening, Other)
  Sender: FDA-Public Use
  Company Number: ADR-2014-00364

PATIENT
  Age: 46 Year
  Sex: Male

DRUGS (4)
  1. BUPIVACAINE [Suspect]
     Active Substance: BUPIVACAINE
  2. BACLOFEN INTRATHECAL [Suspect]
     Active Substance: BACLOFEN
     Indication: PAIN
     Dosage: ^24/DAY^
  3. MORPHINE (20 MG/ML), INTRATHECAL (2.4 MG/DAY) [Suspect]
     Active Substance: MORPHINE
  4. CLONIDINE, INTRATHECAL [Suspect]
     Active Substance: CLONIDINE

REACTIONS (2)
  - Mental status changes [None]
  - Unresponsive to stimuli [None]
